FAERS Safety Report 16135429 (Version 2)
Quarter: 2019Q2

REPORT INFORMATION
  Report Type: Report from Study
  Country: US (occurrence: US)
  Receive Date: 20190329
  Receipt Date: 20190529
  Transmission Date: 20190711
  Serious: Yes (Hospitalization, Other)
  Sender: FDA-Public Use
  Company Number: US-ACTELION-A-NJ2019-188025

PATIENT
  Age: 74 Year
  Sex: Female

DRUGS (2)
  1. WARFARIN [Concomitant]
     Active Substance: WARFARIN
  2. TRACLEER [Suspect]
     Active Substance: BOSENTAN
     Indication: PULMONARY ARTERIAL HYPERTENSION
     Dosage: 125 MG, BID
     Route: 048
     Dates: start: 2007, end: 20190408

REACTIONS (13)
  - Haemolytic anaemia [Unknown]
  - Quality of life decreased [Unknown]
  - Depressed level of consciousness [Unknown]
  - Unevaluable event [Unknown]
  - Fatigue [Unknown]
  - Mineral supplementation [Unknown]
  - Pulmonary arterial hypertension [Unknown]
  - Catheterisation cardiac abnormal [Unknown]
  - Haemoglobin decreased [Unknown]
  - Haematocrit decreased [Unknown]
  - Condition aggravated [Unknown]
  - Transfusion [Unknown]
  - Malaise [Unknown]

NARRATIVE: CASE EVENT DATE: 20190122
